FAERS Safety Report 7948356-7 (Version None)
Quarter: 2011Q4

REPORT INFORMATION
  Report Type: 
  Country: None (occurrence: None)
  Receive Date: 20111123
  Receipt Date: 20111110
  Transmission Date: 20120403
  Serious: Yes (Hospitalization)
  Sender: FDA-Public Use
  Company Number: 0610012

PATIENT
  Age: 3 Year
  Sex: Male

DRUGS (6)
  1. ORFADIN [Suspect]
     Indication: TYROSINAEMIA
     Dosage: 15 MG (5 MG, 3 IN 1 D, ORAL
     Route: 048
     Dates: start: 20021201
  2. VITMAIN E (VITAMIN E) [Concomitant]
  3. VITAMIN C (VITAMIN C) [Concomitant]
  4. MULUPA TYR2 [Concomitant]
  5. L-CARNITINE (L-CARNITINE) [Concomitant]
  6. CALCIUM CARBONATE [Concomitant]

REACTIONS (11)
  - ACUTE POLYNEUROPATHY [None]
  - GASTROENTERITIS [None]
  - HYPOREFLEXIA [None]
  - HYPOTONIA [None]
  - TREATMENT NONCOMPLIANCE [None]
  - NEUROLOGICAL SYMPTOM [None]
  - AMINO ACID LEVEL INCREASED [None]
  - PARAESTHESIA [None]
  - MYALGIA [None]
  - ABASIA [None]
  - HEPATOMEGALY [None]
